FAERS Safety Report 11191724 (Version 1)
Quarter: 2015Q2

REPORT INFORMATION
  Report Type: Spontaneous
  Country: US (occurrence: None)
  Receive Date: 20150603
  Receipt Date: 20150603
  Transmission Date: 20150821
  Serious: No
  Sender: FDA-Public Use
  Company Number: 2015TASUS000713

PATIENT
  Age: 72 Year
  Sex: Female
  Weight: 74.8 kg

DRUGS (9)
  1. AMLODIPINE BESYLATE (AMLODIPINE BESYLATE) [Concomitant]
  2. ATENOLOL (ATENOLOL) [Concomitant]
     Active Substance: ATENOLOL
  3. BENAZEPRIL HCL (BENAZEPRIL HYDROCHLORIDE) [Concomitant]
  4. ZETIA [Concomitant]
     Active Substance: EZETIMIBE
  5. BONIVA [Concomitant]
     Active Substance: IBANDRONATE SODIUM
  6. METFORMIN HCL (METFORMIN HYDROCHLORIDE) [Concomitant]
     Active Substance: METFORMIN HYDROCHLORIDE
  7. BLEPHAMIDE S.O.P. (PREDNISOLONE ACETATE, SULFACETAMIDE SODIUM) [Concomitant]
  8. HETLIOZ [Suspect]
     Active Substance: TASIMELTEON
     Indication: CIRCADIAN RHYTHM SLEEP DISORDER
     Route: 048
     Dates: start: 20140522
  9. SIMVASTATIN (SIMVASTATIN) [Concomitant]
     Active Substance: SIMVASTATIN

REACTIONS (4)
  - Erythema [None]
  - Drug ineffective [None]
  - Periarthritis [None]
  - Inappropriate schedule of drug administration [None]
